FAERS Safety Report 11265431 (Version 2)
Quarter: 2015Q3

REPORT INFORMATION
  Report Type: Spontaneous
  Country: US (occurrence: US)
  Receive Date: 20150713
  Receipt Date: 20150713
  Transmission Date: 20151125
  Serious: Yes (Disabling, Other)
  Sender: FDA-Public Use
  Company Number: US-ACTAVIS-2015-13975

PATIENT
  Age: 56 Year
  Sex: Female

DRUGS (3)
  1. NABUMETONE (WATSON LABORATORIES) [Interacting]
     Active Substance: NABUMETONE
     Indication: RHEUMATOID ARTHRITIS
     Dosage: HIGH-DOSE
     Route: 065
  2. HYDROXYCHLOROQUINE SULFATE (WATSON LABORATORIES) [Suspect]
     Active Substance: HYDROXYCHLOROQUINE SULFATE
     Indication: RHEUMATOID ARTHRITIS
     Dosage: 400 MG, DAILY
     Route: 065
  3. IBUPROFEN (AMALLC) [Interacting]
     Active Substance: IBUPROFEN
     Indication: PRODUCT USED FOR UNKNOWN INDICATION
     Dosage: OCCASIONAL
     Route: 065

REACTIONS (2)
  - Retinopathy [Unknown]
  - Drug interaction [Unknown]
